FAERS Safety Report 4961629-5 (Version None)
Quarter: 2006Q1

REPORT INFORMATION
  Report Type: 
  Country: None (occurrence: None)
  Receive Date: 20060329
  Receipt Date: 20060316
  Transmission Date: 20060701
  Serious: Yes (Disabling)
  Sender: FDA-Public Use
  Company Number: 13758

PATIENT
  Age: 21 Year
  Sex: Female

DRUGS (6)
  1. CARBOPLATIN [Suspect]
     Indication: MEDULLOBLASTOMA
     Dosage: 500 MG/M2 DAILY
  2. CARBOPLATIN [Suspect]
     Indication: RECURRENT CANCER
     Dosage: 500 MG/M2 DAILY
  3. ETOPOSIDE [Suspect]
     Indication: MEDULLOBLASTOMA
     Dosage: 100 MG/M2 DAILY
  4. ETOPOSIDE [Suspect]
     Indication: RECURRENT CANCER
     Dosage: 100 MG/M2 DAILY
  5. THIOTEPA [Suspect]
     Indication: MEDULLOBLASTOMA
     Dosage: 300 MG/M2 DAILY
  6. THIOTEPA [Suspect]
     Indication: RECURRENT CANCER
     Dosage: 300 MG/M2 DAILY

REACTIONS (27)
  - ANXIETY [None]
  - APALLIC SYNDROME [None]
  - BLOOD ALKALINE PHOSPHATASE INCREASED [None]
  - BRADYPHRENIA [None]
  - CEREBRAL ATROPHY [None]
  - COGNITIVE DISORDER [None]
  - CORYNEBACTERIUM INFECTION [None]
  - DIARRHOEA [None]
  - DYSPHAGIA [None]
  - ENCEPHALOPATHY [None]
  - FEBRILE NEUTROPENIA [None]
  - GAMMA-GLUTAMYLTRANSFERASE INCREASED [None]
  - HEADACHE [None]
  - HYDROCEPHALUS [None]
  - HYPERBILIRUBINAEMIA [None]
  - HYPERTONIA [None]
  - HYPOTENSION [None]
  - MUCOSAL INFLAMMATION [None]
  - NAUSEA [None]
  - NEOPLASM RECURRENCE [None]
  - OSTEONECROSIS [None]
  - PERICARDIAL EFFUSION [None]
  - PLEURAL EFFUSION [None]
  - PNEUMOTHORAX [None]
  - SEPSIS [None]
  - SKIN TOXICITY [None]
  - VOMITING [None]
